FAERS Safety Report 11205158 (Version 1)
Quarter: 2015Q2

REPORT INFORMATION
  Report Type: Spontaneous
  Country: US (occurrence: US)
  Receive Date: 20150622
  Receipt Date: 20150622
  Transmission Date: 20150821
  Serious: No
  Sender: FDA-Public Use
  Company Number: US-SUN PHARMACEUTICAL INDUSTRIES LTD-2015US-97144

PATIENT
  Age: 51 Year
  Sex: Male
  Weight: 92.97 kg

DRUGS (1)
  1. TESTOSTERONE. [Suspect]
     Active Substance: TESTOSTERONE
     Indication: HORMONE REPLACEMENT THERAPY
     Dosage: 200 MG, FORTNIGHT
     Route: 030

REACTIONS (5)
  - Contusion [Recovering/Resolving]
  - Injection site discolouration [Recovering/Resolving]
  - Injection site pain [Recovering/Resolving]
  - Product physical consistency issue [Unknown]
  - Injection site swelling [Recovering/Resolving]

NARRATIVE: CASE EVENT DATE: 20150506
